FAERS Safety Report 6522952-6 (Version None)
Quarter: 2009Q4

REPORT INFORMATION
  Report Type: 
  Country: None (occurrence: None)
  Receive Date: 20091222
  Receipt Date: 20091211
  Transmission Date: 20100525
  Serious: Yes (Other)
  Sender: FDA-Public Use
  Company Number: 380001M09EST

PATIENT
  Age: 48 Year
  Sex: Female
  Weight: 65 kg

DRUGS (3)
  1. CRINONE [Suspect]
     Indication: PREGNANCY
     Dosage: 180 MG, 2 IN 1 DAYS, VAGINAL
     Route: 067
     Dates: start: 20091111, end: 20091125
  2. GONAL-F [Suspect]
     Dosage: 150 IU, SUBCUTANEOUS; 300 IU, SUBCUTANEOUS
     Route: 058
     Dates: start: 20091023, end: 20091106
  3. OVIDREL [Suspect]
     Dates: start: 20091107, end: 20091107

REACTIONS (5)
  - ABDOMINAL PAIN [None]
  - ALTERED STATE OF CONSCIOUSNESS [None]
  - BLOOD PRESSURE INCREASED [None]
  - DIZZINESS [None]
  - PALPITATIONS [None]
